FAERS Safety Report 4576737-0 (Version None)
Quarter: 2005Q1

REPORT INFORMATION
  Report Type: 
  Country: None (occurrence: None)
  Receive Date: 20050207
  Receipt Date: 20050131
  Transmission Date: 20050727
  Serious: Yes (Other)
  Sender: FDA-Public Use
  Company Number: 163-20785-05020015

PATIENT
  Age: 4 Year
  Sex: Male

DRUGS (3)
  1. THALOMID [Suspect]
     Indication: LEUKAEMIA
     Dosage: SEE IMAGE
     Route: 048
     Dates: start: 20050127, end: 20050128
  2. THALOMID [Suspect]
     Indication: LEUKAEMIA
     Dosage: SEE IMAGE
     Route: 048
     Dates: start: 20040129
  3. THALOMID [Suspect]

REACTIONS (2)
  - BRADYCARDIA [None]
  - HYPOTHERMIA [None]
